FAERS Safety Report 18319441 (Version 1)
Quarter: 2020Q3

REPORT INFORMATION
  Report Type: Spontaneous
  Country: GB (occurrence: GB)
  Receive Date: 20200928
  Receipt Date: 20200928
  Transmission Date: 20201103
  Serious: Yes (Hospitalization, Other)
  Sender: FDA-Public Use
  Company Number: GB-SA-200113221EU

PATIENT

DRUGS (4)
  1. DOXYCYCLINE. [Concomitant]
     Active Substance: DOXYCYCLINE
     Dosage: UNK
     Dates: start: 19981215, end: 19981230
  2. PARACETAMOL [Interacting]
     Active Substance: ACETAMINOPHEN
     Indication: CAT SCRATCH DISEASE
     Dosage: DOSE TEXT:2?4 G/DAY
     Route: 048
     Dates: start: 19981201, end: 19990115
  3. CLARITHROMYCIN. [Concomitant]
     Active Substance: CLARITHROMYCIN
     Dosage: UNK
     Dates: start: 19990101, end: 19990110
  4. RIFAMPICIN [Suspect]
     Active Substance: RIFAMPIN
     Indication: CAT SCRATCH DISEASE
     Dosage: 600 MG,BID
     Route: 048
     Dates: start: 199901, end: 199901

REACTIONS (6)
  - Drug interaction [Recovered/Resolved]
  - Hepatic failure [Recovered/Resolved]
  - Encephalopathy [Recovered/Resolved]
  - Agitation [Recovered/Resolved]
  - Hepatotoxicity [Recovered/Resolved]
  - Confusional state [Recovered/Resolved]

NARRATIVE: CASE EVENT DATE: 19990115
